FAERS Safety Report 5527892-7 (Version None)
Quarter: 2007Q4

REPORT INFORMATION
  Report Type: 
  Country: None (occurrence: None)
  Receive Date: 20071126
  Receipt Date: 20071126
  Transmission Date: 20080405
  Serious: Yes (Hospitalization)
  Sender: FDA-Public Use
  Company Number: None

PATIENT
  Sex: Female

DRUGS (1)
  1. ALTACE [Suspect]
     Indication: HYPERTENSION
     Dosage: 1 TABLE DAILY PO
     Route: 048
     Dates: start: 20050101, end: 20071123

REACTIONS (1)
  - DRUG HYPERSENSITIVITY [None]
